FAERS Safety Report 14084217 (Version 4)
Quarter: 2018Q1

REPORT INFORMATION
  Report Type: Report from Study
  Country: US (occurrence: US)
  Receive Date: 20171013
  Receipt Date: 20180207
  Transmission Date: 20180508
  Serious: Yes (Other)
  Sender: FDA-Public Use
  Company Number: PHEH2017US032762

PATIENT
  Sex: Female
  Weight: 83.1 kg

DRUGS (2)
  1. LETROZOLE. [Suspect]
     Active Substance: LETROZOLE
     Indication: BREAST CANCER
     Dosage: 2.5 MG, QD
     Route: 048
     Dates: start: 20131230, end: 20171212
  2. FEMARA [Suspect]
     Active Substance: LETROZOLE
     Indication: PRODUCT USED FOR UNKNOWN INDICATION
     Dosage: UNK
     Route: 065

REACTIONS (18)
  - Hot flush [Unknown]
  - Bone pain [Unknown]
  - Agitation [Unknown]
  - Alopecia [Unknown]
  - Myalgia [Not Recovered/Not Resolved]
  - Asthenia [Unknown]
  - Somnolence [Unknown]
  - Blood cholesterol increased [Not Recovered/Not Resolved]
  - Anger [Unknown]
  - Pain in extremity [Unknown]
  - Insomnia [Unknown]
  - Muscle spasms [Unknown]
  - Fatigue [Unknown]
  - Flatulence [Unknown]
  - Hypoaesthesia [Unknown]
  - Weight increased [Unknown]
  - Arthralgia [Unknown]
  - Hyperhidrosis [Unknown]
